FAERS Safety Report 25523833 (Version 2)
Quarter: 2025Q3

REPORT INFORMATION
  Report Type: Spontaneous
  Country: EU (occurrence: EU)
  Receive Date: 20250707
  Receipt Date: 20250731
  Transmission Date: 20251021
  Serious: Yes (Hospitalization)
  Sender: MERCK SHARP & DOHME LLC
  Company Number: None

PATIENT
  Age: 60 Year
  Sex: Female
  Weight: 49 kg

DRUGS (5)
  1. KEYTRUDA [Suspect]
     Active Substance: PEMBROLIZUMAB
     Indication: Breast cancer stage III
     Route: 042
     Dates: start: 20240716, end: 20241118
  2. CYCLOPHOSPHAMIDE [Concomitant]
     Active Substance: CYCLOPHOSPHAMIDE
     Indication: Breast cancer stage III
     Route: 042
     Dates: start: 20241007, end: 20241118
  3. DOXORUBICIN ACCORD HEALTHCARE ITALIA [Concomitant]
     Indication: Breast cancer stage III
     Route: 042
     Dates: start: 20241007, end: 20241118
  4. DEXAMETHASONE [Concomitant]
     Active Substance: DEXAMETHASONE
     Indication: Chemotherapy side effect prophylaxis
     Route: 042
  5. APREPITANT [Concomitant]
     Active Substance: APREPITANT
     Indication: Prophylaxis of nausea and vomiting
     Route: 048

REACTIONS (2)
  - Febrile neutropenia [Recovered/Resolved]
  - Immune-mediated lung disease [Recovered/Resolved]

NARRATIVE: CASE EVENT DATE: 20241028
